FAERS Safety Report 8616733-7 (Version None)
Quarter: 2012Q3

REPORT INFORMATION
  Report Type: 
  Country: None (occurrence: None)
  Receive Date: 20120823
  Receipt Date: 20120817
  Transmission Date: 20120928
  Serious: Yes (Hospitalization)
  Sender: FDA-Public Use
  Company Number: US-PFIZER INC-2012202271

PATIENT
  Age: 59 Year
  Sex: Female
  Weight: 134 kg

DRUGS (3)
  1. METFORMIN [Concomitant]
     Indication: DIABETES MELLITUS
     Dosage: 1000 MG, 2X/DAY
  2. GLUCOTROL [Suspect]
     Indication: DIABETES MELLITUS
     Dosage: 10 MG, 2X/DAY
  3. CITALOPRAM [Concomitant]
     Indication: DEPRESSION
     Dosage: 0.5 MG, 2X/DAY

REACTIONS (1)
  - NEPHROLITHIASIS [None]
